FAERS Safety Report 5232005-5 (Version None)
Quarter: 2007Q1

REPORT INFORMATION
  Report Type: 
  Country: None (occurrence: None)
  Receive Date: 20070202
  Receipt Date: 20070118
  Transmission Date: 20070707
  Serious: Yes (Hospitalization)
  Sender: FDA-Public Use
  Company Number: SPV1-2007-00420

PATIENT
  Age: 53 Year
  Sex: Female
  Weight: 54.4 kg

DRUGS (8)
  1. CARBAMAZEPINE [Suspect]
     Indication: DRUG USE FOR UNKNOWN INDICATION
     Dosage: 1 XS DAILY
     Dates: start: 20060101, end: 20061101
  2. REBIF [Suspect]
     Indication: MULTIPLE SCLEROSIS
     Dosage: 3 IN 1 WEEK, SUBCUTANEOUS
     Route: 058
     Dates: start: 20061103, end: 20061101
  3. TEGRETOL [Suspect]
     Indication: DRUG USE FOR UNKNOWN INDICATION
     Dosage: 4 XS DAILY, ORAL
     Route: 048
     Dates: start: 20060927, end: 20061101
  4. NEURONTIN [Concomitant]
  5. MEDROL [Concomitant]
  6. THYROID TAB [Concomitant]
  7. PAXIL [Concomitant]
  8. TRAZODONE HCL [Concomitant]

REACTIONS (10)
  - ANGIOEDEMA [None]
  - CONDITION AGGRAVATED [None]
  - DRUG TOXICITY [None]
  - HEADACHE [None]
  - HEPATITIS [None]
  - NIGHT SWEATS [None]
  - ORAL PAIN [None]
  - PHARYNGOLARYNGEAL PAIN [None]
  - PYREXIA [None]
  - RASH [None]
